FAERS Safety Report 5427281-X (Version None)
Quarter: 2007Q3

REPORT INFORMATION
  Report Type: 
  Country: None (occurrence: None)
  Receive Date: 20070823
  Receipt Date: 20070806
  Transmission Date: 20080115
  Serious: Yes (Hospitalization)
  Sender: FDA-Public Use
  Company Number: 6036733

PATIENT
  Age: 58 Year
  Sex: Male

DRUGS (3)
  1. ENALAPRIL (ENALAPRIL) [Suspect]
     Indication: HYPERTENSION
     Dosage: 20 MG (20 MG, 1 IN 1 D)
  2. LOSARTAN POTASSIUM [Suspect]
     Indication: HYPERTENSION
     Dosage: 50 MG (50 MG, 1 IN 1 D)
  3. ORLISTAT (ORLISTAT) [Suspect]
     Indication: DRUG USE FOR UNKNOWN INDICATION
     Dosage: 360 MG (120 MG, 3 IN 1 D)

REACTIONS (3)
  - DRUG INTERACTION [None]
  - HAEMORRHAGE INTRACRANIAL [None]
  - HYPERTENSION [None]
